FAERS Safety Report 4564905-3 (Version None)
Quarter: 2005Q1

REPORT INFORMATION
  Report Type: 
  Country: None (occurrence: None)
  Receive Date: 20050126
  Receipt Date: 20041217
  Transmission Date: 20050727
  Serious: Yes (Hospitalization)
  Sender: FDA-Public Use
  Company Number: 04P-056-0284287-00

PATIENT
  Age: 31 Year
  Sex: Female
  Weight: 57 kg

DRUGS (6)
  1. ISOPTIN SR [Suspect]
     Dosage: 240 MG, 1 IN 1 D PER ORAL
     Route: 048
     Dates: end: 20040924
  2. FUSAFUNGINE [Concomitant]
  3. LEVOTHYROXINE [Concomitant]
  4. OXOMMAZINE [Concomitant]
  5. LOSARTAN [Concomitant]
  6. IBUPROFEN [Concomitant]

REACTIONS (3)
  - ACCIDENTAL OVERDOSE [None]
  - ORTHOSTATIC HYPOTENSION [None]
  - RENAL FAILURE [None]
